FAERS Safety Report 6552571-7 (Version None)
Quarter: 2010Q1

REPORT INFORMATION
  Report Type: 
  Country: None (occurrence: None)
  Receive Date: 20100126
  Receipt Date: 20100121
  Transmission Date: 20100710
  Serious: Yes (Other)
  Sender: FDA-Public Use
  Company Number: A0840886A

PATIENT
  Age: 23 Year
  Sex: Female
  Weight: 105 kg

DRUGS (3)
  1. ALLI [Suspect]
     Route: 048
     Dates: start: 20100107, end: 20100120
  2. DEPO-PROVERA [Concomitant]
  3. MULTI-VITAMIN [Concomitant]

REACTIONS (5)
  - ABDOMINAL DISCOMFORT [None]
  - DIARRHOEA [None]
  - LOCAL SWELLING [None]
  - RECTAL FISSURE [None]
  - RECTAL HAEMORRHAGE [None]
